FAERS Safety Report 16707882 (Version 2)
Quarter: 2022Q1

REPORT INFORMATION
  Report Type: Report from Study
  Country: US (occurrence: US)
  Receive Date: 20190815
  Receipt Date: 20220106
  Transmission Date: 20220423
  Serious: Yes (Hospitalization)
  Sender: FDA-Public Use
  Company Number: US-PFIZER INC-2019346017

PATIENT
  Age: 28 Year
  Sex: Male
  Weight: 85 kg

DRUGS (3)
  1. IRINOTECAN HYDROCHLORIDE [Suspect]
     Active Substance: IRINOTECAN HYDROCHLORIDE
     Indication: Rhabdomyosarcoma
     Dosage: UNK UNK, CYCLIC (OVER 90 MINUTES ON DAYS 1-5 OF CYCLES 6, 7 AND 9)
     Route: 042
     Dates: start: 20190125, end: 20190721
  2. TEMSIROLIMUS [Suspect]
     Active Substance: TEMSIROLIMUS
     Indication: Rhabdomyosarcoma
     Dosage: 15 MG/M2, CYCLIC (OVER 30-60 MINUTES ON DAYS 1, 8, AND 15 OF CYCLES 8, 9 AND 10)
     Route: 042
     Dates: start: 20190125, end: 20190723
  3. VINCRISTINE SULFATE [Suspect]
     Active Substance: VINCRISTINE SULFATE
     Indication: Rhabdomyosarcoma
     Dosage: UNK UNK, CYCLIC(OVER 1 MINUTE OR INFUSION VIA MINIBAG ON DAY 1 OF CYCLES 5 AND 10, ON DAYS 1 AND 8 )
     Route: 042
     Dates: start: 20190125, end: 20190723

REACTIONS (2)
  - Dehydration [Recovered/Resolved]
  - Stomatitis [Unknown]

NARRATIVE: CASE EVENT DATE: 20190622
